FAERS Safety Report 7293568-1 (Version None)
Quarter: 2011Q1

REPORT INFORMATION
  Report Type: 
  Country: None (occurrence: None)
  Receive Date: 20110202
  Receipt Date: 20110122
  Transmission Date: 20110831
  Serious: Yes (Hospitalization, Other)
  Sender: FDA-Public Use
  Company Number: CL-289-2011

PATIENT
  Age: 18 Year
  Sex: Female

DRUGS (1)
  1. MIDAZOLAM HCL [Suspect]
     Indication: SEDATION
     Dosage: 1+2 MG ONCE; INTRAVENOUS (EACH DOSE GIVEN ONCE)
     Route: 042

REACTIONS (4)
  - RETROGRADE AMNESIA [None]
  - AGGRESSION [None]
  - SCREAMING [None]
  - CRYING [None]
